FAERS Safety Report 20903001 (Version 2)
Quarter: 2022Q2

REPORT INFORMATION
  Report Type: Report from Study
  Country: US (occurrence: US)
  Receive Date: 20220601
  Receipt Date: 20220610
  Transmission Date: 20220721
  Serious: Yes (Death, Other)
  Sender: FDA-Public Use
  Company Number: US-GLAXOSMITHKLINE-US2022GSK086307

PATIENT

DRUGS (18)
  1. LEVOFLOXACIN [Suspect]
     Active Substance: LEVOFLOXACIN
     Indication: Antibiotic prophylaxis
     Dosage: UNK
  2. ACYCLOVIR [Suspect]
     Active Substance: ACYCLOVIR
     Indication: Antiviral prophylaxis
     Dosage: UNK
  3. POSACONAZOLE [Suspect]
     Active Substance: POSACONAZOLE
     Indication: Antifungal prophylaxis
     Dosage: UNK
  4. POSACONAZOLE [Suspect]
     Active Substance: POSACONAZOLE
     Dosage: UNK
  5. PENTAMIDINE [Suspect]
     Active Substance: PENTAMIDINE
     Indication: Antibiotic prophylaxis
     Dosage: UNK
     Route: 055
  6. LETERMOVIR [Suspect]
     Active Substance: LETERMOVIR
     Indication: Antibiotic prophylaxis
     Dosage: UNK
  7. SULFAMETHOXAZOLE\TRIMETHOPRIM [Concomitant]
     Active Substance: SULFAMETHOXAZOLE\TRIMETHOPRIM
     Indication: Antibiotic prophylaxis
     Dosage: UNK
  8. PREDNISONE [Concomitant]
     Active Substance: PREDNISONE
     Indication: Graft versus host disease
     Dosage: UNK
  9. ETANERCEPT [Concomitant]
     Active Substance: ETANERCEPT
     Indication: Graft versus host disease
     Dosage: UNK
  10. NYSTATIN [Concomitant]
     Active Substance: NYSTATIN
     Indication: Antibiotic prophylaxis
     Dosage: UNK
  11. VALGANCICLOVIR [Concomitant]
     Active Substance: VALGANCICLOVIR
     Indication: Antiviral prophylaxis
     Dosage: UNK
  12. METHYLPREDNISOLONE [Concomitant]
     Active Substance: METHYLPREDNISOLONE
     Indication: Graft versus host disease
     Dosage: UNK
  13. AMPHOTERICIN B [Concomitant]
     Active Substance: AMPHOTERICIN B
     Indication: Antifungal prophylaxis
     Dosage: UNK
  14. FLUCYTOSINE [Concomitant]
     Active Substance: FLUCYTOSINE
     Indication: Antifungal prophylaxis
     Dosage: UNK
  15. LINEZOLID [Concomitant]
     Active Substance: LINEZOLID
     Indication: Antibiotic prophylaxis
     Dosage: UNK
  16. VORICONAZOLE [Concomitant]
     Active Substance: VORICONAZOLE
     Indication: Antifungal prophylaxis
     Dosage: UNK
  17. CEFEPIME [Concomitant]
     Active Substance: CEFEPIME HYDROCHLORIDE
     Indication: Antibiotic prophylaxis
     Dosage: UNK
  18. METRONIDAZOLE [Concomitant]
     Active Substance: METRONIDAZOLE
     Indication: Antibiotic prophylaxis
     Dosage: UNK

REACTIONS (9)
  - Septic shock [Fatal]
  - Staphylococcal bacteraemia [Fatal]
  - Disseminated cryptococcosis [Fatal]
  - Thrombocytopenia [Unknown]
  - Pancytopenia [Unknown]
  - Enterococcal bacteraemia [Fatal]
  - Lung opacity [Unknown]
  - Bronchopulmonary aspergillosis [Fatal]
  - Drug ineffective [Fatal]
